FAERS Safety Report 5963996-2 (Version None)
Quarter: 2008Q4

REPORT INFORMATION
  Report Type: 
  Country: None (occurrence: None)
  Receive Date: 20081124
  Receipt Date: 20081111
  Transmission Date: 20090506
  Serious: Yes (Hospitalization, Other)
  Sender: FDA-Public Use
  Company Number: DE-ELI_LILLY_AND_COMPANY-DE200811002439

PATIENT
  Sex: Female
  Weight: 60 kg

DRUGS (3)
  1. YENTREVE [Suspect]
     Indication: STRESS URINARY INCONTINENCE
     Dosage: 20 MG, 2/D
     Route: 048
     Dates: start: 20080624, end: 20080707
  2. YENTREVE [Suspect]
     Dosage: 40 MG, 2/D
     Route: 048
     Dates: start: 20080708, end: 20081030
  3. ESTRADERM [Concomitant]
     Dosage: 37.5 D/F, UNKNOWN
     Route: 062
     Dates: start: 20070903

REACTIONS (4)
  - ANXIETY [None]
  - HYPERTENSIVE CRISIS [None]
  - NIGHTMARE [None]
  - STUPOR [None]
